FAERS Safety Report 8933400 (Version 1)
Quarter: 2012Q4

REPORT INFORMATION
  Report Type: 
  Country: BR (occurrence: BR)
  Receive Date: 20121128
  Receipt Date: 20121128
  Transmission Date: 20130627
  Serious: Yes (Other)
  Sender: FDA-Public Use
  Company Number: BR-AMGEN-BRASP2012076229

PATIENT
  Age: 55 Year
  Sex: Male
  Weight: 89 kg

DRUGS (3)
  1. ENBREL [Suspect]
     Indication: RHEUMATOID ARTHRITIS
     Dosage: 50 mg, once weekly
     Route: 058
  2. PURAN T4 [Concomitant]
     Dosage: UNK
  3. ARCOXIA [Concomitant]
     Dosage: 60 mg, 1x/day

REACTIONS (2)
  - Spinal disorder [Unknown]
  - Pain [Unknown]
